FAERS Safety Report 6136885-0 (Version None)
Quarter: 2009Q1

REPORT INFORMATION
  Report Type: 
  Country: None (occurrence: None)
  Receive Date: 20090330
  Receipt Date: 20090317
  Transmission Date: 20090719
  Serious: Yes (Death, Other)
  Sender: FDA-Public Use
  Company Number: CN-BAYER-200916454GPV

PATIENT

DRUGS (3)
  1. DACARBAZINE [Suspect]
     Indication: ACRAL LENTIGINOUS MELANOMA STAGE UNSPECIFIED
     Route: 065
  2. FOTEMUSTINE [Suspect]
     Indication: ACRAL LENTIGINOUS MELANOMA STAGE UNSPECIFIED
  3. DENDRITIC CELL VACCINES [Concomitant]
     Indication: ACRAL LENTIGINOUS MELANOMA STAGE UNSPECIFIED
     Route: 058

REACTIONS (11)
  - ALANINE AMINOTRANSFERASE INCREASED [None]
  - ANOREXIA [None]
  - ASPARTATE AMINOTRANSFERASE INCREASED [None]
  - BLOOD BILIRUBIN INCREASED [None]
  - FATIGUE [None]
  - HYPERSENSITIVITY [None]
  - NAUSEA [None]
  - NEUTROPENIA [None]
  - PYREXIA [None]
  - THROMBOCYTOPENIA [None]
  - VOMITING [None]
